FAERS Safety Report 21642371 (Version 1)
Quarter: 2022Q4

REPORT INFORMATION
  Report Type: Spontaneous
  Country: PT (occurrence: PT)
  Receive Date: 20221125
  Receipt Date: 20221125
  Transmission Date: 20230113
  Serious: Yes (Other)
  Sender: FDA-Public Use
  Company Number: PT-002147023-NVSC2022PT263457

PATIENT
  Age: 59 Year
  Sex: Female

DRUGS (5)
  1. TRAMETINIB [Suspect]
     Active Substance: TRAMETINIB
     Indication: Ovarian cancer stage III
     Dosage: 2 MG, QD
     Route: 048
  2. TRAMETINIB [Suspect]
     Active Substance: TRAMETINIB
     Dosage: 1 MG, QD
     Route: 048
  3. TRAMETINIB [Suspect]
     Active Substance: TRAMETINIB
     Indication: BRAF V600E mutation positive
  4. DABRAFENIB [Suspect]
     Active Substance: DABRAFENIB
     Indication: Ovarian cancer stage III
     Dosage: 150 MG, BID
     Route: 048
  5. DABRAFENIB [Suspect]
     Active Substance: DABRAFENIB
     Indication: BRAF V600E mutation positive
     Dosage: 75 MG, BID
     Route: 048

REACTIONS (4)
  - Urosepsis [Unknown]
  - Renal impairment [Unknown]
  - Therapy partial responder [Unknown]
  - Product use in unapproved indication [Unknown]
